FAERS Safety Report 5925215-2 (Version None)
Quarter: 2008Q4

REPORT INFORMATION
  Report Type: 
  Country: None (occurrence: None)
  Receive Date: 20081021
  Receipt Date: 20081016
  Transmission Date: 20090506
  Serious: Yes (Death)
  Sender: FDA-Public Use
  Company Number: ES-CELGENEUS-144-21880-08080728

PATIENT
  Sex: Male

DRUGS (2)
  1. REVLIMID [Suspect]
     Indication: MYELOFIBROSIS
     Route: 048
     Dates: start: 20061030, end: 20061201
  2. FRAXIPARIN [Concomitant]
     Route: 065

REACTIONS (3)
  - ASTHENIA [None]
  - DISEASE PROGRESSION [None]
  - THROMBOCYTOPENIA [None]
